FAERS Safety Report 20529223 (Version 2)
Quarter: 2022Q1

REPORT INFORMATION
  Report Type: Spontaneous
  Country: AU (occurrence: None)
  Receive Date: 20220228
  Receipt Date: 20220304
  Transmission Date: 20220423
  Serious: Yes (Other)
  Sender: FDA-Public Use
  Company Number: 2022A086061

PATIENT
  Age: 19389 Day
  Sex: Female

DRUGS (4)
  1. SYMBICORT [Suspect]
     Active Substance: BUDESONIDE\FORMOTEROL FUMARATE DIHYDRATE
     Indication: Asthma
     Dosage: 400/12, 400 MG TWO TIMES A DAY
     Route: 055
     Dates: start: 202111
  2. PREDNISONE [Suspect]
     Active Substance: PREDNISONE
     Dosage: SHE HAS RECEIVED MULTIPLE COURSES OF PREDNISONE WHICH HAVE PROVIDED SUBJECTIVE AND OBJECTIVE BENE...
     Route: 065
  3. PREDNISONE [Suspect]
     Active Substance: PREDNISONE
     Dosage: UNKNOWN
     Route: 065
  4. PFIZER-BIONTECH COVID-19 VACCINE [Suspect]
     Active Substance: TOZINAMERAN
     Route: 065

REACTIONS (2)
  - Eosinophilia [Unknown]
  - Sinusitis [Not Recovered/Not Resolved]
